FAERS Safety Report 4763604-2 (Version None)
Quarter: 2005Q3

REPORT INFORMATION
  Report Type: 
  Country: None (occurrence: None)
  Receive Date: 20050908
  Receipt Date: 20050907
  Transmission Date: 20060218
  Serious: Yes (Other)
  Sender: FDA-Public Use
  Company Number: PHNU2005DE03089

PATIENT
  Age: 41 Year
  Sex: Female

DRUGS (5)
  1. LORZAAR [Concomitant]
  2. NEURIUM /GFR/ [Concomitant]
  3. INSULIN BASAL [Concomitant]
  4. HUMALOG [Concomitant]
  5. LAMISIL [Suspect]
     Indication: NAIL TINEA
     Dosage: 1 DF, QD
     Route: 048
     Dates: start: 20050905, end: 20050906

REACTIONS (2)
  - HYPERTENSION [None]
  - VITREOUS HAEMORRHAGE [None]
